FAERS Safety Report 18605440 (Version 4)
Quarter: 2020Q4

REPORT INFORMATION
  Report Type: Spontaneous
  Country: NO (occurrence: NO)
  Receive Date: 20201211
  Receipt Date: 20201223
  Transmission Date: 20210114
  Serious: Yes (Death, Other)
  Sender: FDA-Public Use
  Company Number: NO-PFIZER INC-2020487756

PATIENT
  Age: 82 Year
  Sex: Female

DRUGS (4)
  1. PREDNISOLON [PREDNISOLONE] [Concomitant]
     Active Substance: PREDNISOLONE
     Dosage: 5 MG
     Route: 065
  2. BETMIGA [Concomitant]
     Active Substance: MIRABEGRON
     Dosage: 50 MG
     Route: 065
  3. HIPREX [METHENAMINE HIPPURATE] [Concomitant]
     Dosage: 1 G
     Route: 065
  4. ZESSLY [Suspect]
     Active Substance: INFLIXIMAB
     Indication: POLYARTHRITIS
     Dosage: 200 MG, BIW
     Route: 042
     Dates: start: 20200831, end: 20200914

REACTIONS (1)
  - Pneumonia [Fatal]

NARRATIVE: CASE EVENT DATE: 20201006
